FAERS Safety Report 5958804-X (Version None)
Quarter: 2008Q4

REPORT INFORMATION
  Report Type: 
  Country: None (occurrence: None)
  Receive Date: 20081117
  Receipt Date: 20081031
  Transmission Date: 20090506
  Serious: Yes (Hospitalization)
  Sender: FDA-Public Use
  Company Number: 8037533

PATIENT
  Age: 40 Year
  Sex: Male
  Weight: 81.45 kg

DRUGS (9)
  1. CIMZIA [Suspect]
     Indication: CROHN'S DISEASE
     Dosage: 400 MG SC
     Route: 058
     Dates: start: 20080617
  2. TRAZODONE HCL [Concomitant]
  3. ELAVIL [Concomitant]
  4. LYRICA [Concomitant]
  5. OXYCODONE HCL [Concomitant]
  6. FLEXERIL [Concomitant]
  7. REGLAN [Concomitant]
  8. NEXIUM [Concomitant]
  9. DEPO-PROVERA [Concomitant]

REACTIONS (14)
  - ABDOMINAL PAIN [None]
  - BODY TEMPERATURE INCREASED [None]
  - CELLULITIS [None]
  - CHILLS [None]
  - CONDITION AGGRAVATED [None]
  - CROHN'S DISEASE [None]
  - DISEASE RECURRENCE [None]
  - FEMALE GENITAL TRACT FISTULA [None]
  - NAUSEA [None]
  - PAIN [None]
  - PRODUCT QUALITY ISSUE [None]
  - PURULENT DISCHARGE [None]
  - RECTAL HAEMORRHAGE [None]
  - VULVAL ABSCESS [None]
